FAERS Safety Report 6636046-2 (Version None)
Quarter: 2010Q1

REPORT INFORMATION
  Report Type: 
  Country: None (occurrence: None)
  Receive Date: 20100311
  Receipt Date: 20100304
  Transmission Date: 20100710
  Serious: Yes (Other)
  Sender: FDA-Public Use
  Company Number: 2010SP004215

PATIENT
  Age: 23 Year
  Sex: Female

DRUGS (1)
  1. IMPLANON [Suspect]
     Indication: CONTRACEPTION
     Dosage: 1 DFL; SC
     Route: 058
     Dates: start: 20090618, end: 20100110

REACTIONS (8)
  - ALOPECIA [None]
  - BACK PAIN [None]
  - FATIGUE [None]
  - HYPOAESTHESIA [None]
  - MOOD SWINGS [None]
  - NAUSEA [None]
  - PAIN IN EXTREMITY [None]
  - RASH [None]
